FAERS Safety Report 4996160-4 (Version None)
Quarter: 2006Q2

REPORT INFORMATION
  Report Type: 
  Country: None (occurrence: None)
  Receive Date: 20060504
  Receipt Date: 20060421
  Transmission Date: 20061013
  Serious: Yes (Death)
  Sender: FDA-Public Use
  Company Number: CERZ-11153

PATIENT
  Age: 7 Year
  Sex: Female

DRUGS (1)
  1. CEREZYME [Suspect]
     Indication: GAUCHER'S DISEASE
     Dosage: 120 UNITS IV
     Route: 042
     Dates: start: 19991020, end: 20060129

REACTIONS (2)
  - CONVULSION [None]
  - RESPIRATORY FAILURE [None]
